FAERS Safety Report 11813026 (Version 1)
Quarter: 2015Q4

REPORT INFORMATION
  Report Type: Spontaneous
  Country: IN (occurrence: IN)
  Receive Date: 20151209
  Receipt Date: 20151209
  Transmission Date: 20160305
  Serious: No
  Sender: FDA-Public Use
  Company Number: IN-LUPIN PHARMACEUTICALS INC.-E2B_00004315

PATIENT
  Age: 40 Year
  Sex: Male

DRUGS (3)
  1. SUMO TABLET [Concomitant]
     Indication: PYREXIA
     Route: 048
     Dates: start: 20151004, end: 20151004
  2. ZANTAC [Concomitant]
     Active Substance: RANITIDINE HYDROCHLORIDE
     Indication: FLATULENCE
     Route: 048
     Dates: start: 20151004, end: 20151004
  3. DEFENAC INJ 3 ML ( 100X3ML) [Suspect]
     Active Substance: DICLOFENAC SODIUM
     Indication: PAIN IN EXTREMITY
     Route: 030
     Dates: start: 20151004, end: 20151004

REACTIONS (1)
  - Pruritus generalised [Recovering/Resolving]

NARRATIVE: CASE EVENT DATE: 20151004
